FAERS Safety Report 5276954-0 (Version None)
Quarter: 2007Q1

REPORT INFORMATION
  Report Type: 
  Country: None (occurrence: None)
  Receive Date: 20070327
  Receipt Date: 20070319
  Transmission Date: 20070707
  Serious: Yes (Hospitalization)
  Sender: FDA-Public Use
  Company Number: FR-BRISTOL-MYERS SQUIBB COMPANY-13727201

PATIENT
  Age: 71 Year
  Sex: Female

DRUGS (11)
  1. ENDOXAN [Suspect]
     Indication: VASCULITIS NECROTISING
     Route: 042
     Dates: start: 20070202, end: 20070202
  2. UROMITEXAN [Suspect]
     Indication: VASCULITIS NECROTISING
     Route: 026
     Dates: start: 20070202, end: 20070202
  3. CORTANCYL [Concomitant]
     Dates: start: 20070123, end: 20070208
  4. KARDEGIC [Concomitant]
     Dates: start: 20070123
  5. TRIATEC [Concomitant]
     Dates: start: 20070123
  6. LERCAN [Concomitant]
  7. OMEPRAZOLE [Concomitant]
     Dates: start: 20070123
  8. PRAVASTATIN [Concomitant]
     Dates: start: 20070123
  9. OROCAL D3 [Concomitant]
     Dates: start: 20070123
  10. FOSAMAX [Concomitant]
     Dates: start: 20070123
  11. IMOVANE [Concomitant]
     Dates: start: 20070123

REACTIONS (3)
  - BLOOD CREATININE INCREASED [None]
  - RASH MACULO-PAPULAR [None]
  - THROMBOCYTOPENIA [None]
